FAERS Safety Report 6274529-8 (Version None)
Quarter: 2009Q3

REPORT INFORMATION
  Report Type: 
  Country: None (occurrence: None)
  Receive Date: 20090720
  Receipt Date: 20090709
  Transmission Date: 20100115
  Serious: Yes (Death)
  Sender: FDA-Public Use
  Company Number: PL-MERCK-0907POL00008

PATIENT
  Age: 81 Year
  Sex: Female

DRUGS (5)
  1. PRIMAXIN [Suspect]
     Indication: NECROTISING FASCIITIS
     Route: 065
  2. DOXYCYCLINE [Concomitant]
     Indication: NECROTISING FASCIITIS
     Route: 042
  3. METRONIDAZOLE [Concomitant]
     Indication: NECROTISING FASCIITIS
     Route: 065
  4. CEFAMANDOLE [Concomitant]
     Indication: NECROTISING FASCIITIS
     Route: 065
  5. CIPROFLOXACIN [Concomitant]
     Indication: NECROTISING FASCIITIS
     Route: 065

REACTIONS (1)
  - DRUG INEFFECTIVE [None]
